FAERS Safety Report 21504070 (Version 7)
Quarter: 2024Q4

REPORT INFORMATION
  Report Type: Report from Study
  Country: DE (occurrence: DE)
  Receive Date: 20221025
  Receipt Date: 20241016
  Transmission Date: 20250114
  Serious: No
  Sender: ROCHE
  Company Number: DE-ROCHE-2941944

PATIENT
  Age: 55 Year
  Sex: Female

DRUGS (7)
  1. OCREVUS [Suspect]
     Active Substance: OCRELIZUMAB
     Indication: Relapsing-remitting multiple sclerosis
     Dosage: 600MG, EVERY 182 DAYS, 600MG, EVERY 319 DAYS.
     Route: 042
     Dates: start: 20211007
  2. BACLOFEN [Concomitant]
     Active Substance: BACLOFEN
  3. NABIXIMOLS [Concomitant]
     Active Substance: NABIXIMOLS
  4. PROPIVERINE HYDROCHLORIDE [Concomitant]
     Active Substance: PROPIVERINE HYDROCHLORIDE
  5. MIRABEGRON [Concomitant]
     Active Substance: MIRABEGRON
  6. PROPIONIC ACID [Concomitant]
     Active Substance: PROPIONIC ACID
  7. TIZANIDINE [Concomitant]
     Active Substance: TIZANIDINE

REACTIONS (9)
  - Fatigue [Not Recovered/Not Resolved]
  - Blood pressure increased [Recovered/Resolved]
  - Heart rate increased [Recovered/Resolved]
  - COVID-19 [Recovered/Resolved]
  - Muscle spasticity [Not Recovered/Not Resolved]
  - Magnetic resonance imaging spinal abnormal [Not Recovered/Not Resolved]
  - Nasopharyngitis [Recovered/Resolved]
  - Oropharyngeal pain [Recovered/Resolved]
  - Constipation [Recovered/Resolved]

NARRATIVE: CASE EVENT DATE: 20211007
